FAERS Safety Report 4300413-2 (Version None)
Quarter: 2004Q1

REPORT INFORMATION
  Report Type: 
  Country: None (occurrence: None)
  Receive Date: 20040220
  Receipt Date: 20040114
  Transmission Date: 20041129
  Serious: Yes (Life-Threatening, Hospitalization)
  Sender: FDA-Public Use
  Company Number: GB-BRISTOL-MYERS SQUIBB COMPANY-12477675

PATIENT
  Age: 56 Year
  Sex: Male
  Weight: 79 kg

DRUGS (3)
  1. PACLITAXEL [Suspect]
     Indication: BLADDER CANCER
     Dosage: INITIAL DOSE: 18-DEC-2003
     Dates: start: 20031224, end: 20031224
  2. CISPLATIN [Suspect]
     Indication: BLADDER CANCER
     Dates: start: 20031218, end: 20031218
  3. GEMCITABINE [Suspect]
     Indication: BLADDER CANCER
     Dosage: INITIAL DOSE: 18-DEC-2003
     Dates: start: 20031224, end: 20031224

REACTIONS (2)
  - HYPONATRAEMIA [None]
  - POLYDIPSIA [None]
